FAERS Safety Report 8600796-9 (Version None)
Quarter: 2012Q3

REPORT INFORMATION
  Report Type: 
  Country: None (occurrence: None)
  Receive Date: 20120806
  Receipt Date: 20120720
  Transmission Date: 20120928
  Serious: No
  Sender: FDA-Public Use
  Company Number: TPG2012A01352

PATIENT
  Age: 68 Year
  Sex: Female

DRUGS (4)
  1. EDARBI [Suspect]
     Indication: HYPERTENSION
     Dosage: 40 MG
     Route: 048
     Dates: start: 20120329, end: 20120410
  2. BISOPROLOL FUMARATE [Concomitant]
  3. PHENPRO (PHENPROCOUMON) [Concomitant]
  4. LOSARTAN POTASSIUM [Concomitant]

REACTIONS (2)
  - OEDEMA PERIPHERAL [None]
  - DYSPNOEA EXERTIONAL [None]
